FAERS Safety Report 4911164-5 (Version None)
Quarter: 2006Q1

REPORT INFORMATION
  Report Type: 
  Country: None (occurrence: None)
  Receive Date: 20060209
  Receipt Date: 20060203
  Transmission Date: 20060701
  Serious: Yes (Hospitalization)
  Sender: FDA-Public Use
  Company Number: DE-2006-002041

PATIENT
  Sex: 0

DRUGS (1)
  1. ULTRAVIST 370 [Suspect]
     Dosage: 1 DOSE
     Dates: start: 20060201, end: 20060201

REACTIONS (2)
  - CARDIAC ARREST [None]
  - CARDIOVASCULAR DISORDER [None]
